FAERS Safety Report 6612213-9 (Version None)
Quarter: 2010Q1

REPORT INFORMATION
  Report Type: 
  Country: None (occurrence: None)
  Receive Date: 20100303
  Receipt Date: 20100302
  Transmission Date: 20100710
  Serious: Yes (Other)
  Sender: FDA-Public Use
  Company Number: US-BRISTOL-MYERS SQUIBB COMPANY-14999270

PATIENT
  Sex: Male

DRUGS (2)
  1. COUMADIN [Suspect]
     Dates: start: 20050101
  2. LOVENOX [Suspect]

REACTIONS (2)
  - COLON NEOPLASM [None]
  - INTERNATIONAL NORMALISED RATIO DECREASED [None]
